FAERS Safety Report 5737170-9 (Version None)
Quarter: 2008Q2

REPORT INFORMATION
  Report Type: 
  Country: None (occurrence: None)
  Receive Date: 20080513
  Receipt Date: 20080513
  Transmission Date: 20081010
  Serious: No
  Sender: FDA-Public Use
  Company Number: None

PATIENT
  Age: 50 Year
  Sex: Male
  Weight: 99.7913 kg

DRUGS (2)
  1. LEVAQUIN [Suspect]
     Indication: SINUSITIS
     Dosage: 500 MG DAILY PO
     Route: 048
     Dates: start: 20080213, end: 20080218
  2. LEVAQUIN [Suspect]
     Indication: STAPHYLOCOCCAL INFECTION
     Dosage: 500 MG DAILY PO
     Route: 048
     Dates: start: 20080213, end: 20080218

REACTIONS (10)
  - ARTHRALGIA [None]
  - GAIT DISTURBANCE [None]
  - MYALGIA [None]
  - NEUROPATHY PERIPHERAL [None]
  - PARAESTHESIA [None]
  - PHANTOM PAIN [None]
  - PRURITUS [None]
  - STAPHYLOCOCCAL INFECTION [None]
  - TENDON PAIN [None]
  - WALKING AID USER [None]
